FAERS Safety Report 15668276 (Version 1)
Quarter: 2018Q4

REPORT INFORMATION
  Report Type: Spontaneous
  Country: GB (occurrence: GB)
  Receive Date: 20181129
  Receipt Date: 20181129
  Transmission Date: 20190205
  Serious: Yes (Other)
  Sender: FDA-Public Use
  Company Number: GB-TEVA-2018-GB-979779

PATIENT
  Age: 61 Year
  Sex: Male
  Weight: 80 kg

DRUGS (2)
  1. ATORVASTATIN [Suspect]
     Active Substance: ATORVASTATIN
     Dosage: 20 MILLIGRAM DAILY;
     Route: 048
     Dates: start: 20181010, end: 20181023
  2. ALLIUM SATIVUM [Concomitant]
     Route: 065

REACTIONS (5)
  - Flatulence [Recovering/Resolving]
  - Peptic ulcer [Recovering/Resolving]
  - Myalgia [Recovering/Resolving]
  - Abdominal distension [Recovering/Resolving]
  - Chest pain [Recovering/Resolving]

NARRATIVE: CASE EVENT DATE: 20181012
